FAERS Safety Report 15904117 (Version 1)
Quarter: 2019Q1

REPORT INFORMATION
  Report Type: Spontaneous
  Country: US (occurrence: US)
  Receive Date: 20190204
  Receipt Date: 20190204
  Transmission Date: 20190417
  Serious: No
  Sender: FDA-Public Use
  Company Number: US-AUROBINDO-AUR-APU-2018-004111

PATIENT
  Sex: Female
  Weight: 22 kg

DRUGS (1)
  1. CEFDINIR FOR ORAL SUSPENSION 250 MG/5 ML [Suspect]
     Active Substance: CEFDINIR
     Indication: EAR INFECTION
     Dosage: 04 ML, TWO TIMES A DAY
     Route: 048
     Dates: start: 20180122, end: 20180125

REACTIONS (1)
  - Abdominal pain upper [Not Recovered/Not Resolved]

NARRATIVE: CASE EVENT DATE: 20180125
